FAERS Safety Report 8089593-3 (Version None)
Quarter: 2012Q1

REPORT INFORMATION
  Report Type: 
  Country: None (occurrence: None)
  Receive Date: 20120128
  Receipt Date: 20110808
  Transmission Date: 20120608
  Serious: No
  Sender: FDA-Public Use
  Company Number: US-ABBOTT-11P-163-0837943-00

PATIENT
  Sex: Female
  Weight: 70.824 kg

DRUGS (6)
  1. MULTI-VITAMIN [Concomitant]
     Indication: VITAMIN SUPPLEMENTATION
  2. MERCAPTOPURINE [Concomitant]
     Indication: CROHN'S DISEASE
  3. BIRTH CONTROL PILLS [Concomitant]
     Indication: CONTRACEPTION
  4. CALCIUM SUPPLEMENT [Concomitant]
     Indication: MINERAL SUPPLEMENTATION
  5. UNNAMED NEBULIZER MEDICATION [Concomitant]
     Indication: ASTHMA
  6. HUMIRA [Suspect]
     Indication: CROHN'S DISEASE
     Dates: start: 20110101

REACTIONS (7)
  - INJECTION SITE HAEMATOMA [None]
  - INJECTION SITE PAIN [None]
  - INJECTION SITE ERYTHEMA [None]
  - INJECTION SITE URTICARIA [None]
  - DRUG DOSE OMISSION [None]
  - INJECTION SITE PRURITUS [None]
  - DEVICE MALFUNCTION [None]
